FAERS Safety Report 7950901-2 (Version None)
Quarter: 2011Q4

REPORT INFORMATION
  Report Type: 
  Country: None (occurrence: None)
  Receive Date: 20111201
  Receipt Date: 20111122
  Transmission Date: 20120403
  Serious: No
  Sender: FDA-Public Use
  Company Number: US-BIOGENIDEC-2010BI042485

PATIENT
  Sex: Female

DRUGS (5)
  1. TYSABRI [Suspect]
     Indication: MULTIPLE SCLEROSIS
     Route: 042
     Dates: start: 20100713
  2. AMPYRA [Concomitant]
     Indication: GAIT DISTURBANCE
     Route: 048
     Dates: start: 20100101
  3. AMPYRA [Concomitant]
     Route: 048
     Dates: start: 20100101
  4. METHOTREXATE [Concomitant]
     Indication: ARTHRITIS
     Dates: start: 19930101, end: 20100801
  5. AVONEX [Concomitant]
     Indication: MULTIPLE SCLEROSIS
     Route: 030
     Dates: start: 19960101

REACTIONS (8)
  - BALANCE DISORDER [None]
  - CONTUSION [None]
  - PARAESTHESIA [None]
  - GAIT DISTURBANCE [None]
  - DIZZINESS [None]
  - BACK PAIN [None]
  - ARTHRALGIA [None]
  - FALL [None]
